FAERS Safety Report 7518634-4 (Version None)
Quarter: 2011Q2

REPORT INFORMATION
  Report Type: 
  Country: None (occurrence: None)
  Receive Date: 20110602
  Receipt Date: 20110520
  Transmission Date: 20111010
  Serious: Yes (Death)
  Sender: FDA-Public Use
  Company Number: JP-CELGENEUS-087-21880-11043491

PATIENT
  Sex: Male

DRUGS (20)
  1. TRICHLORMETHIAZIDE [Concomitant]
     Dosage: 2 MILLIGRAM
     Route: 048
     Dates: start: 20110218, end: 20110317
  2. SELBEX [Concomitant]
     Dosage: 100 MILLIGRAM
     Route: 048
     Dates: start: 20110218, end: 20110317
  3. ALOSENN [Concomitant]
     Dosage: 1 GRAM
     Route: 048
     Dates: start: 20110224, end: 20110317
  4. REVLIMID [Suspect]
     Route: 048
     Dates: start: 20110318, end: 20110407
  5. HERBESSER R [Concomitant]
     Indication: ANGINA PECTORIS
     Dosage: 100 MILLIGRAM
     Route: 048
     Dates: start: 20110218, end: 20110317
  6. ASPIRIN [Concomitant]
     Indication: ANGINA PECTORIS
     Dosage: 100 MILLIGRAM
     Route: 048
     Dates: start: 20110218, end: 20110508
  7. SULFAMETHOXAZOLE [Concomitant]
     Indication: PROPHYLAXIS
     Dosage: 1 TABLET
     Route: 048
     Dates: start: 20110218, end: 20110508
  8. CORTRIL [Concomitant]
     Dosage: 15 MILLIGRAM
     Route: 048
     Dates: start: 20110318, end: 20110508
  9. LASIX [Concomitant]
     Dosage: 20 MILLIGRAM
     Route: 048
     Dates: start: 20110218, end: 20110317
  10. BONALON [Concomitant]
     Dosage: 35 MILLIGRAM
     Route: 048
     Dates: start: 20110218, end: 20110317
  11. RABEPRAZOLE SODIUM [Concomitant]
     Indication: PROPHYLAXIS
     Dosage: 10 MILLIGRAM
     Route: 048
     Dates: start: 20110318, end: 20110508
  12. ASPARA POTASSIUM [Concomitant]
     Dosage: 1200 MILLIGRAM
     Route: 048
     Dates: start: 20110218, end: 20110317
  13. ITRACONAZOLE [Concomitant]
     Indication: PROPHYLAXIS
     Dosage: 200 MILLIGRAM
     Route: 048
     Dates: start: 20110303, end: 20110310
  14. REVLIMID [Suspect]
     Indication: MULTIPLE MYELOMA
     Dosage: 10 MILLIGRAM
     Route: 048
     Dates: start: 20110218, end: 20110310
  15. ALLOPURINOL [Concomitant]
     Dosage: 100 MILLIGRAM
     Route: 048
     Dates: start: 20110218, end: 20110317
  16. REBAMIPIDE [Concomitant]
     Indication: PROPHYLAXIS
     Dosage: 1 TABLET
     Route: 048
     Dates: start: 20110318, end: 20110508
  17. METHYCOBAL [Concomitant]
     Dosage: 1000 MICROGRAM
     Route: 048
     Dates: start: 20110218, end: 20110508
  18. VFEND [Concomitant]
     Indication: PROPHYLAXIS
     Dosage: 300 MILLIGRAM
     Route: 048
     Dates: start: 20110311, end: 20110508
  19. REVLIMID [Suspect]
     Dosage: 10 MILLIGRAM
     Route: 048
     Dates: start: 20110415, end: 20110505
  20. DEXAMETHASONE [Suspect]
     Indication: MULTIPLE MYELOMA
     Dosage: 20 MILLIGRAM
     Route: 048
     Dates: start: 20110221, end: 20110224

REACTIONS (9)
  - PNEUMONIA [None]
  - NEUTROPENIA [None]
  - ANAEMIA [None]
  - DISSEMINATED INTRAVASCULAR COAGULATION [None]
  - RENAL FAILURE ACUTE [None]
  - BRONCHOPNEUMONIA [None]
  - THROMBOCYTOPENIA [None]
  - HYPOXIA [None]
  - DIARRHOEA [None]
